FAERS Safety Report 7020102-3 (Version None)
Quarter: 2010Q3

REPORT INFORMATION
  Report Type: 
  Country: None (occurrence: None)
  Receive Date: 20100929
  Receipt Date: 20100917
  Transmission Date: 20110219
  Serious: Yes (Hospitalization)
  Sender: FDA-Public Use
  Company Number: US-GENZYME-HECT-1000094

PATIENT
  Sex: Male
  Weight: 100 kg

DRUGS (5)
  1. HECTOROL [Suspect]
     Indication: SECONDARY HYPOTHYROIDISM
     Dosage: 1 MCG, TIW
     Route: 042
     Dates: start: 20100505, end: 20100513
  2. HECTOROL [Suspect]
     Dosage: UNK
     Route: 042
     Dates: start: 20100519, end: 20100521
  3. CINACALCET [Suspect]
     Indication: HYPERPARATHYROIDISM SECONDARY
     Dosage: 30 MG, QD
     Route: 048
     Dates: start: 20100505, end: 20100513
  4. CINACALCET [Suspect]
     Dosage: 30 MG, QD
     Route: 048
     Dates: start: 20100519, end: 20100521
  5. SEVELAMER [Concomitant]
     Indication: HYPERPHOSPHATAEMIA
     Dosage: 1.6 G, TID
     Route: 048
     Dates: start: 20091007

REACTIONS (1)
  - VOMITING [None]
